FAERS Safety Report 5051600-X (Version None)
Quarter: 2006Q3

REPORT INFORMATION
  Report Type: 
  Country: None (occurrence: None)
  Receive Date: 20060714
  Receipt Date: 20060704
  Transmission Date: 20061208
  Serious: Yes (Other)
  Sender: FDA-Public Use
  Company Number: GBWYE971204JUL06

PATIENT
  Age: 69 Year
  Sex: Female
  Weight: 78 kg

DRUGS (9)
  1. ENBREL [Suspect]
     Indication: DRUG USE FOR UNKNOWN INDICATION
     Dosage: 25MG
     Route: 058
     Dates: start: 20050201, end: 20060606
  2. ATENOLOL [Concomitant]
     Dosage: 25MG, FREQUENCY UNKNOWN
     Route: 048
  3. FOLIC ACID [Concomitant]
     Dosage: 5MG TWICE WEEKLY
     Route: 048
  4. ZOPICLONE [Concomitant]
     Dosage: 7MG, FREQUENCY UNKNOWN
     Route: 048
  5. MELOXICAM [Concomitant]
     Dosage: UNKNOWN
     Route: 048
  6. METHOTREXATE [Concomitant]
     Dosage: 15MG ONE TIMES A WEEK
     Route: 048
  7. PARACETAMOL [Concomitant]
     Dosage: 500MG, FREQUENCY UNKNOWN
     Route: 048
  8. ACETYLSALICYLIC ACID SRT [Concomitant]
     Dosage: 75MG, FREQUENCY UNKNOWN
     Route: 048
  9. GLYCERYL TRINITRATE [Concomitant]
     Dosage: AS NECESSARY

REACTIONS (3)
  - DYSPNOEA [None]
  - HYPERSENSITIVITY [None]
  - SWELLING FACE [None]
